FAERS Safety Report 4366174-6 (Version None)
Quarter: 2004Q2

REPORT INFORMATION
  Report Type: 
  Country: None (occurrence: None)
  Receive Date: 20040526
  Receipt Date: 20040526
  Transmission Date: 20050107
  Serious: Yes (Other)
  Sender: FDA-Public Use
  Company Number: None

PATIENT
  Age: 46 Year
  Sex: Male
  Weight: 113.4 kg

DRUGS (4)
  1. OMEPRAZOLE [Suspect]
  2. FEXOFENADINE HCL [Concomitant]
  3. GEMFIBROZIL [Concomitant]
  4. NIACIN(NIASPAN-KOS) [Concomitant]

REACTIONS (2)
  - NAUSEA [None]
  - VOMITING [None]
